FAERS Safety Report 8777014 (Version 1)
Quarter: 2012Q4

REPORT INFORMATION
  Report Type: 
  Country: US (occurrence: US)
  Receive Date: 20120911
  Receipt Date: 20120911
  Transmission Date: 20130627
  Serious: Yes (Hospitalization, Other)
  Sender: FDA-Public Use
  Company Number: US-WATSON-2012-15581

PATIENT
  Age: 45 Day
  Sex: Female

DRUGS (1)
  1. OXYCODONE HYDROCHLORIDE [Suspect]
     Indication: EXPOSURE DURING BREAST FEEDING
     Dosage: UNK mg, qid
     Route: 063

REACTIONS (4)
  - Respiratory distress [Recovered/Resolved]
  - Feeding disorder of infancy or early childhood [Recovered/Resolved]
  - Constipation [Recovered/Resolved]
  - Exposure during breast feeding [Recovered/Resolved]
